FAERS Safety Report 5698394-2 (Version None)
Quarter: 2008Q2

REPORT INFORMATION
  Report Type: 
  Country: None (occurrence: None)
  Receive Date: 20080403
  Receipt Date: 20080402
  Transmission Date: 20081010
  Serious: Yes (Hospitalization)
  Sender: FDA-Public Use
  Company Number: 2008SP006104

PATIENT
  Age: 85 Year
  Sex: Male

DRUGS (10)
  1. DESLORATADINE [Suspect]
     Indication: DRUG USE FOR UNKNOWN INDICATION
     Dosage: 5 MG, QD; PO
     Route: 048
     Dates: start: 20071213, end: 20071216
  2. PREVISCAN (FLUINDIONE) [Suspect]
     Indication: PULMONARY EMBOLISM
     Dosage: 10 MG, QPM;PO
     Route: 048
     Dates: start: 20061215, end: 20071215
  3. IXEL (MILNACIPRAN) [Suspect]
     Indication: DEPRESSION
     Dosage: 25 MG;BID;PO
     Route: 048
     Dates: end: 20071216
  4. FORLAX (MACROGOL) [Suspect]
     Indication: DRUG USE FOR UNKNOWN INDICATION
     Dosage: 10 GM;QAM;PO
     Route: 048
     Dates: end: 20071216
  5. ZOLPIDEM TARTRATE [Suspect]
     Indication: DRUG USE FOR UNKNOWN INDICATION
     Dosage: 10 MG;QPM;PO
     Route: 048
     Dates: end: 20071216
  6. HYDROCORTISONE [Suspect]
     Indication: DRUG USE FOR UNKNOWN INDICATION
  7. LEVOTHYROXINE SODIUM [Suspect]
     Indication: DRUG USE FOR UNKNOWN INDICATION
     Dosage: 100 MCG;QAM;PO
     Route: 048
  8. NEXIUM [Concomitant]
  9. ALPRAZOLAM [Concomitant]
  10. EFFERALGAN [Concomitant]

REACTIONS (5)
  - ANAEMIA [None]
  - DEPRESSION [None]
  - INTERNATIONAL NORMALISED RATIO INCREASED [None]
  - MUSCLE HAEMORRHAGE [None]
  - SUBCUTANEOUS HAEMATOMA [None]
